FAERS Safety Report 18043489 (Version 1)
Quarter: 2020Q3

REPORT INFORMATION
  Report Type: Spontaneous
  Country: US (occurrence: US)
  Receive Date: 20200717
  Receipt Date: 20200717
  Transmission Date: 20201103
  Serious: No
  Sender: FDA-Public Use
  Company Number: None

PATIENT
  Age: 60 Year
  Sex: Female
  Weight: 56.25 kg

DRUGS (25)
  1. ZONISAMIDE. [Concomitant]
     Active Substance: ZONISAMIDE
  2. ASPIRIN 81MG [Concomitant]
     Active Substance: ASPIRIN
  3. TRAMADOL. [Concomitant]
     Active Substance: TRAMADOL
  4. EPIPEN [Concomitant]
     Active Substance: EPINEPHRINE
  5. VITAMIN B2 [Concomitant]
     Active Substance: RIBOFLAVIN
  6. IMITREX PILLS AND INJECTIONS [Concomitant]
  7. BOTOX [Concomitant]
     Active Substance: ONABOTULINUMTOXINA
  8. IBUPROFEN. [Concomitant]
     Active Substance: IBUPROFEN
  9. RIBOFLAVIN [Concomitant]
     Active Substance: RIBOFLAVIN
  10. LEVOTHYROXINE. [Concomitant]
     Active Substance: LEVOTHYROXINE
  11. CLONAZEPAM. [Concomitant]
     Active Substance: CLONAZEPAM
  12. SYMBICORT [Concomitant]
     Active Substance: BUDESONIDE\FORMOTEROL FUMARATE DIHYDRATE
  13. METHYLPREDNISONE (PRN) [Concomitant]
  14. MELATONIN [Concomitant]
     Active Substance: MELATONIN
  15. ESTRADIOL. [Concomitant]
     Active Substance: ESTRADIOL
  16. PROPRANANOL [Concomitant]
     Active Substance: PROPRANOLOL HYDROCHLORIDE
  17. TIZANADINE [Concomitant]
     Active Substance: TIZANIDINE
  18. XOPENEX [Concomitant]
     Active Substance: LEVALBUTEROL HYDROCHLORIDE
  19. VITAMIN B COMPLEX [Concomitant]
     Active Substance: CYANOCOBALAMIN\DEXPANTHENOL\NIACINAMIDE\PYRIDOXINE HYDROCHLORIDE\RIBOFLAVIN 5^-PHOSPHATE SODIUM\THIAMINE HYDROCHLORIDE\VITAMIN B COMPLEX
  20. MAGNESIUM GLYCINATE [Concomitant]
     Active Substance: MAGNESIUM GLYCINATE
  21. FEVERFEW WITH BUTTERBUR [Concomitant]
  22. PREDNISOLONE ACETATE?MOXIFLOXACIN?NEPAFENAC STERILE OPHTHALMIC SUSPENSION [Suspect]
     Active Substance: MOXIFLOXACIN\NEPAFENAC\PREDNISOLONE ACETATE
     Indication: CATARACT OPERATION
     Route: 047
     Dates: start: 20200717
  23. VENLAFAXINE [Concomitant]
     Active Substance: VENLAFAXINE HYDROCHLORIDE
  24. PROGESTERONE. [Concomitant]
     Active Substance: PROGESTERONE
  25. CLOBETASOL PROPIONATE. [Concomitant]
     Active Substance: CLOBETASOL PROPIONATE

REACTIONS (4)
  - Hypersensitivity [None]
  - Eye irritation [None]
  - Eye pain [None]
  - Conjunctival oedema [None]

NARRATIVE: CASE EVENT DATE: 20200717
